FAERS Safety Report 20237113 (Version 1)
Quarter: 2021Q4

REPORT INFORMATION
  Report Type: Spontaneous
  Country: PL (occurrence: PL)
  Receive Date: 20211228
  Receipt Date: 20211228
  Transmission Date: 20220303
  Serious: Yes (Hospitalization, Other)
  Sender: FDA-Public Use
  Company Number: PL-BAYER-2021A273934

PATIENT
  Age: 54 Year
  Sex: Male

DRUGS (2)
  1. NEXAVAR [Suspect]
     Active Substance: SORAFENIB
     Indication: Hepatocellular carcinoma
     Dosage: UNK
  2. NEXAVAR [Suspect]
     Active Substance: SORAFENIB
     Indication: Hepatocellular carcinoma
     Dosage: UNK

REACTIONS (9)
  - Oedema peripheral [None]
  - Dyspnoea [None]
  - Ascites [Not Recovered/Not Resolved]
  - Bleeding varicose vein [None]
  - Liver disorder [None]
  - Weight decreased [None]
  - Asthenia [None]
  - Pain [None]
  - Peripheral swelling [Recovering/Resolving]
